FAERS Safety Report 24059404 (Version 1)
Quarter: 2024Q3

REPORT INFORMATION
  Report Type: Spontaneous
  Country: ES (occurrence: ES)
  Receive Date: 20240708
  Receipt Date: 20240708
  Transmission Date: 20241016
  Serious: Yes (Other)
  Sender: AUROBINDO
  Company Number: ES-AEMPS-1541918

PATIENT
  Age: 50 Year
  Sex: Male

DRUGS (2)
  1. LACOSAMIDE [Suspect]
     Active Substance: LACOSAMIDE
     Indication: Status epilepticus
     Dosage: UNK
     Route: 048
     Dates: start: 20240405, end: 20240407
  2. LACOSAMIDE [Suspect]
     Active Substance: LACOSAMIDE
     Dosage: UNK
     Route: 042
     Dates: start: 20240405, end: 20240407

REACTIONS (5)
  - Seizure [Recovered/Resolved]
  - Intentional product use issue [Recovered/Resolved]
  - Incorrect route of product administration [Recovered/Resolved]
  - Product availability issue [Recovered/Resolved]
  - Drug ineffective [Recovered/Resolved]

NARRATIVE: CASE EVENT DATE: 20240405
